FAERS Safety Report 5455194-6 (Version None)
Quarter: 2007Q3

REPORT INFORMATION
  Report Type: 
  Country: None (occurrence: None)
  Receive Date: 20070918
  Receipt Date: 20070906
  Transmission Date: 20080115
  Serious: Yes (Hospitalization)
  Sender: FDA-Public Use
  Company Number: BE-JNJFOC-20070901488

PATIENT
  Sex: Female

DRUGS (1)
  1. HALDOL [Suspect]
     Indication: VOMITING
     Route: 042

REACTIONS (2)
  - CEREBRAL INFARCTION [None]
  - CEREBROVASCULAR SPASM [None]
